FAERS Safety Report 10094291 (Version 1)
Quarter: 2014Q2

REPORT INFORMATION
  Report Type: Spontaneous
  Country: US (occurrence: None)
  Receive Date: 20140421
  Receipt Date: 20140421
  Transmission Date: 20141212
  Serious: Yes (Other)
  Sender: FDA-Public Use
  Company Number: None

PATIENT
  Age: 5 Year
  Sex: Male
  Weight: 18.14 kg

DRUGS (1)
  1. SINGULAIR [Suspect]
     Dosage: 1 PILL  ONCE DAILY  TAKEN BY MOUTH
     Route: 048

REACTIONS (7)
  - Sleep terror [None]
  - Screaming [None]
  - Personality change [None]
  - Anger [None]
  - Aggression [None]
  - Abnormal behaviour [None]
  - Conversion disorder [None]
